FAERS Safety Report 6762409-0 (Version None)
Quarter: 2010Q2

REPORT INFORMATION
  Report Type: 
  Country: None (occurrence: None)
  Receive Date: 20100609
  Receipt Date: 20100531
  Transmission Date: 20101027
  Serious: Yes (Hospitalization)
  Sender: FDA-Public Use
  Company Number: JP-ROCHE-707940

PATIENT
  Sex: Female
  Weight: 71 kg

DRUGS (21)
  1. TOCILIZUMAB [Suspect]
     Indication: RHEUMATOID ARTHRITIS
     Route: 041
     Dates: start: 20080728, end: 20080728
  2. TOCILIZUMAB [Suspect]
     Route: 041
     Dates: start: 20080825, end: 20080825
  3. TOCILIZUMAB [Suspect]
     Route: 041
     Dates: start: 20080919, end: 20080919
  4. TOCILIZUMAB [Suspect]
     Route: 041
     Dates: start: 20081020, end: 20081020
  5. TOCILIZUMAB [Suspect]
     Route: 041
     Dates: start: 20081117, end: 20081117
  6. TOCILIZUMAB [Suspect]
     Route: 041
     Dates: start: 20081215, end: 20081215
  7. TOCILIZUMAB [Suspect]
     Route: 041
     Dates: start: 20090119, end: 20090119
  8. TOCILIZUMAB [Suspect]
     Route: 041
     Dates: start: 20090216, end: 20090216
  9. TOCILIZUMAB [Suspect]
     Route: 041
     Dates: start: 20090316, end: 20090316
  10. TOCILIZUMAB [Suspect]
     Route: 041
     Dates: start: 20090413, end: 20090413
  11. TOCILIZUMAB [Suspect]
     Route: 041
     Dates: start: 20090511, end: 20090511
  12. TOCILIZUMAB [Suspect]
     Route: 041
     Dates: start: 20090608, end: 20090608
  13. TOCILIZUMAB [Suspect]
     Route: 041
     Dates: start: 20090706
  14. REMICADE [Suspect]
     Indication: RHEUMATOID ARTHRITIS
     Route: 041
     Dates: start: 20041007, end: 20080204
  15. PREDNISOLONE [Concomitant]
     Route: 048
     Dates: start: 20080526, end: 20080721
  16. PREDNISOLONE [Concomitant]
     Route: 048
     Dates: start: 20080722, end: 20080825
  17. SIMVASTATIN [Concomitant]
     Route: 048
  18. BENET [Concomitant]
     Route: 048
  19. LOXOPROFEN SODIUM [Concomitant]
     Route: 048
  20. GASTER D [Concomitant]
     Route: 048
  21. ALFAROL [Concomitant]
     Dosage: PERORAL AGENT
     Route: 048

REACTIONS (1)
  - LYMPHOMA [None]
